FAERS Safety Report 10916631 (Version 1)
Quarter: 2015Q1

REPORT INFORMATION
  Report Type: Spontaneous
  Country: SE (occurrence: SE)
  Receive Date: 20150316
  Receipt Date: 20150316
  Transmission Date: 20150721
  Serious: Yes (Other)
  Sender: FDA-Public Use
  Company Number: SE-ACTELION-A-CH2015-113184

PATIENT
  Age: 52 Year
  Sex: Female

DRUGS (5)
  1. OPSUMIT [Suspect]
     Active Substance: MACITENTAN
     Indication: PULMONARY ARTERIAL HYPERTENSION
     Dosage: 10 MG, OD
     Route: 048
     Dates: start: 20141124
  2. WARFARIN [Suspect]
     Active Substance: WARFARIN
     Indication: PRODUCT USED FOR UNKNOWN INDICATION
     Dosage: UNK
     Route: 048
     Dates: start: 201411
  3. ADALAT [Concomitant]
     Active Substance: NIFEDIPINE
     Dosage: 10 MG, UNK
  4. LOSARTAN [Concomitant]
     Active Substance: LOSARTAN
  5. OMEPRAZOLE. [Concomitant]
     Active Substance: OMEPRAZOLE

REACTIONS (3)
  - Optic nerve sheath haemorrhage [Recovered/Resolved]
  - Visual impairment [Recovered/Resolved]
  - Optic neuritis [Recovered/Resolved]

NARRATIVE: CASE EVENT DATE: 20150114
